FAERS Safety Report 18172480 (Version 1)
Quarter: 2020Q3

REPORT INFORMATION
  Report Type: Spontaneous
  Country: US (occurrence: US)
  Receive Date: 20200820
  Receipt Date: 20200820
  Transmission Date: 20201103
  Serious: No
  Sender: FDA-Public Use
  Company Number: NVSC2020US227945

PATIENT
  Sex: Female

DRUGS (1)
  1. ILARIS [Suspect]
     Active Substance: CANAKINUMAB
     Indication: CRYOPYRIN ASSOCIATED PERIODIC SYNDROME
     Route: 065

REACTIONS (4)
  - Platelet count decreased [Recovering/Resolving]
  - Contusion [Recovering/Resolving]
  - Menorrhagia [Recovering/Resolving]
  - Injection site haemorrhage [Recovering/Resolving]
